FAERS Safety Report 17485672 (Version 1)
Quarter: 2020Q1

REPORT INFORMATION
  Report Type: Spontaneous
  Country: US (occurrence: US)
  Receive Date: 20200302
  Receipt Date: 20200302
  Transmission Date: 20200409
  Serious: No
  Sender: FDA-Public Use
  Company Number: US-SA-2020SA053270

PATIENT
  Age: 27 Year
  Sex: Female

DRUGS (1)
  1. DUPIXENT [Suspect]
     Active Substance: DUPILUMAB
     Indication: ASTHMA
     Dosage: 300 MG, QOW
     Route: 058
     Dates: start: 202001

REACTIONS (7)
  - Product use issue [Unknown]
  - Injection site pruritus [Unknown]
  - Injection site swelling [Unknown]
  - Injection site hypersensitivity [Unknown]
  - Injection site erythema [Unknown]
  - Injection site urticaria [Unknown]
  - Injection site ulcer [Unknown]

NARRATIVE: CASE EVENT DATE: 202001
